FAERS Safety Report 7413066-1 (Version None)
Quarter: 2011Q2

REPORT INFORMATION
  Report Type: 
  Country: None (occurrence: None)
  Receive Date: 20110405
  Receipt Date: 20110317
  Transmission Date: 20111010
  Serious: Yes (Death)
  Sender: FDA-Public Use
  Company Number: 2011P1005336

PATIENT
  Age: 24 Year
  Sex: Male

DRUGS (4)
  1. BENZODIAZEPINE (NO PREF. NAME) [Suspect]
  2. AMPHETAMINE SALTS (NO PREF. NAME) [Suspect]
  3. HEROIN (NO PREF. NAME) [Suspect]
  4. COCAINE (NO PREF. NAME) [Suspect]

REACTIONS (2)
  - CARDIAC ARREST [None]
  - RESPIRATORY ARREST [None]
